FAERS Safety Report 5897320-0 (Version None)
Quarter: 2008Q3

REPORT INFORMATION
  Report Type: 
  Country: None (occurrence: None)
  Receive Date: 20080915
  Receipt Date: 20080627
  Transmission Date: 20090109
  Serious: Yes (Other)
  Sender: FDA-Public Use
  Company Number: 50114

PATIENT
  Age: 55 Year
  Sex: Female

DRUGS (1)
  1. ESMOLOL HCL [Suspect]
     Dosage: 150CMG/KG/MIN IV DRIP
     Route: 041
     Dates: start: 20080626, end: 20080627

REACTIONS (1)
  - EXTRAVASATION [None]
